FAERS Safety Report 7072519-9 (Version None)
Quarter: 2010Q4

REPORT INFORMATION
  Report Type: 
  Country: None (occurrence: None)
  Receive Date: 20101029
  Receipt Date: 20100204
  Transmission Date: 20110411
  Serious: No
  Sender: FDA-Public Use
  Company Number: A0843027A

PATIENT
  Age: 66 Year
  Sex: Female

DRUGS (4)
  1. ADVAIR DISKUS 100/50 [Suspect]
     Indication: EMPHYSEMA
     Dosage: 1PUFF TWICE PER DAY
     Route: 055
     Dates: start: 20091226
  2. COUMADIN [Concomitant]
  3. XOPENEX [Concomitant]
  4. ALBUTEROL [Concomitant]

REACTIONS (2)
  - BURNING SENSATION [None]
  - DYSURIA [None]
